FAERS Safety Report 7825557-X (Version None)
Quarter: 2011Q4

REPORT INFORMATION
  Report Type: 
  Country: None (occurrence: None)
  Receive Date: 20111019
  Receipt Date: 20111011
  Transmission Date: 20120403
  Serious: Yes (Death, Hospitalization)
  Sender: FDA-Public Use
  Company Number: US-BRISTOL-MYERS SQUIBB COMPANY-16153330

PATIENT
  Age: 72 Year
  Sex: Female
  Weight: 70 kg

DRUGS (3)
  1. CYTARABINE [Suspect]
     Indication: ACUTE MYELOID LEUKAEMIA
     Dosage: 1.5GRAMS/M2. DAYS 4-7
     Route: 042
     Dates: start: 20110910, end: 20110913
  2. PRAVASTATIN SODIUM [Suspect]
     Indication: ACUTE MYELOID LEUKAEMIA
     Dosage: 1280MG QD DAYS 1-8 COURSE:1
     Route: 048
     Dates: start: 20110907, end: 20110914
  3. IDARUBICIN HCL [Suspect]
     Indication: ACUTE MYELOID LEUKAEMIA
     Dosage: 12MG/M2. DAYS 4-6
     Route: 042
     Dates: start: 20110910, end: 20110912

REACTIONS (7)
  - DISEASE PROGRESSION [None]
  - SEPSIS [None]
  - LYMPHOCYTE COUNT DECREASED [None]
  - PLATELET COUNT DECREASED [None]
  - ATRIAL FIBRILLATION [None]
  - STOMATITIS [None]
  - ANAEMIA [None]
